FAERS Safety Report 10896910 (Version 1)
Quarter: 2015Q1

REPORT INFORMATION
  Report Type: Spontaneous
  Country: US (occurrence: US)
  Receive Date: 20150309
  Receipt Date: 20150309
  Transmission Date: 20150721
  Serious: Yes (Death)
  Sender: FDA-Public Use
  Company Number: US-BANPHARM-20153714

PATIENT
  Age: 66 Year
  Sex: Male

DRUGS (3)
  1. DIPHENHYDRAMINE UNKNOWN PRODUCT [Suspect]
     Active Substance: DIPHENHYDRAMINE
  2. HEROIN [Suspect]
     Active Substance: DIACETYLMORPHINE
  3. CHLORDIAZEPOXIDE [Suspect]
     Active Substance: CHLORDIAZEPOXIDE

REACTIONS (1)
  - Drug abuse [Fatal]
